FAERS Safety Report 11743557 (Version 2)
Quarter: 2015Q4

REPORT INFORMATION
  Report Type: Report from Study
  Country: CO (occurrence: CO)
  Receive Date: 20151116
  Receipt Date: 20151208
  Transmission Date: 20160304
  Serious: Yes (Hospitalization)
  Sender: FDA-Public Use
  Company Number: PHHY2015CO099353

PATIENT
  Age: 42 Year
  Sex: Male

DRUGS (3)
  1. AFINITOR [Suspect]
     Active Substance: EVEROLIMUS
     Indication: NEUROENDOCRINE TUMOUR
  2. AFINITOR [Suspect]
     Active Substance: EVEROLIMUS
     Indication: BREAST CANCER
     Dosage: 5 MG, QD
     Route: 048
     Dates: start: 20150713, end: 20151103
  3. AFINITOR [Suspect]
     Active Substance: EVEROLIMUS
     Indication: RENAL CANCER

REACTIONS (18)
  - Toxicity to various agents [Unknown]
  - Choking sensation [Unknown]
  - Swollen tongue [Unknown]
  - Arterial occlusive disease [Unknown]
  - Malaise [Unknown]
  - Gait disturbance [Unknown]
  - Blood creatinine increased [Unknown]
  - Pain in extremity [Unknown]
  - Thyroid hormones increased [Unknown]
  - Transaminases increased [Unknown]
  - Fatigue [Unknown]
  - Cough [Unknown]
  - Aphasia [Unknown]
  - Pyrexia [Unknown]
  - Tonsillitis [Unknown]
  - Dyspnoea [Unknown]
  - Lung disorder [Unknown]
  - Blood glucose increased [Unknown]

NARRATIVE: CASE EVENT DATE: 20151029
